FAERS Safety Report 5032910-9 (Version None)
Quarter: 2006Q2

REPORT INFORMATION
  Report Type: 
  Country: None (occurrence: None)
  Receive Date: 20060515
  Receipt Date: 20060330
  Transmission Date: 20061013
  Serious: No
  Sender: FDA-Public Use
  Company Number: S06-USA-00903-01

PATIENT
  Age: 93 Year
  Sex: Female

DRUGS (7)
  1. NAMENDA [Suspect]
     Indication: DEMENTIA ALZHEIMER'S TYPE
     Dosage: 15 MG QD PO
     Route: 048
     Dates: start: 20060301
  2. NAMENDA [Suspect]
     Indication: DEMENTIA ALZHEIMER'S TYPE
     Dosage: 10 MG QD PO
     Route: 048
     Dates: start: 20051201, end: 20060301
  3. ARICEPT [Concomitant]
  4. EFFEXOR [Concomitant]
  5. PROTONIX [Concomitant]
  6. LASIX [Concomitant]
  7. COREG [Concomitant]

REACTIONS (1)
  - HYPERHIDROSIS [None]
